FAERS Safety Report 8195313-4 (Version None)
Quarter: 2012Q1

REPORT INFORMATION
  Report Type: 
  Country: None (occurrence: None)
  Receive Date: 20120308
  Receipt Date: 20101119
  Transmission Date: 20120608
  Serious: Yes (Other)
  Sender: FDA-Public Use
  Company Number: CA-GLAXOSMITHKLINE-A0894415A

PATIENT
  Sex: Male

DRUGS (12)
  1. CLONIDINE [Concomitant]
  2. RASILEZ [Concomitant]
  3. LOSARTAN POTASSIUM [Concomitant]
  4. METFORMIN HYDROCHLORIDE [Concomitant]
     Route: 065
  5. BISOPROLOL FUMARATE [Concomitant]
  6. VOTRIENT [Suspect]
     Indication: RENAL CANCER METASTATIC
     Dosage: 800MG PER DAY
     Route: 048
     Dates: start: 20101014
  7. AMLODIPINE [Concomitant]
  8. ANTIHYPERTENSIVE [Concomitant]
     Indication: HYPERTENSION
     Route: 065
  9. ESSIAC TEA [Concomitant]
     Route: 065
  10. LEVOTHYROXINE SODIUM [Concomitant]
  11. CLONAZEPAM [Concomitant]
  12. ATORVASTATIN [Concomitant]

REACTIONS (5)
  - TRANSFUSION [None]
  - NEOPLASM MALIGNANT [None]
  - INFECTION [None]
  - DEHYDRATION [None]
  - HEADACHE [None]
